FAERS Safety Report 8621666 (Version 2)
Quarter: 2014Q1

REPORT INFORMATION
  Report Type: Spontaneous
  Country: US (occurrence: None)
  Receive Date: 20120323
  Receipt Date: 20130305
  Transmission Date: 20141002
  Serious: Yes (Other)
  Sender: FDA-Public Use
  Company Number: 163-21880-11120694

PATIENT
  Age: 82 Year
  Sex: Male
  Weight: 72.6 kg

DRUGS (2)
  1. REVLIMID [Suspect]
     Indication: MYELODYSPLASTIC SYNDROME
     Dosage: 5 MG, 1 IN 1 D, PO
     Route: 048
     Dates: start: 201107, end: 201201
  2. ARANESP (DARBEPOETIN ALFA) [Concomitant]

REACTIONS (1)
  - Red blood cell count decreased [None]
